FAERS Safety Report 5145505-3 (Version None)
Quarter: 2006Q4

REPORT INFORMATION
  Report Type: 
  Country: None (occurrence: None)
  Receive Date: 20061101
  Receipt Date: 20061020
  Transmission Date: 20070319
  Serious: Yes (Other)
  Sender: FDA-Public Use
  Company Number: 231427

PATIENT
  Age: 64 Year
  Sex: Male
  Weight: 72.6 kg

DRUGS (15)
  1. AVASTIN [Suspect]
     Indication: PROSTATE CANCER
     Dosage: 500 MG, 1/MONTH, INTRAVENOUS
     Route: 042
     Dates: start: 20051227
  2. AREDIA [Concomitant]
  3. ANTIHYPERTENSIVE (ANTIHYPERTENSIVE NOS) [Concomitant]
  4. IVIG (GLOBULIN, IMMUNE) [Concomitant]
  5. REVLIMID (LENALIDOMIDE) [Concomitant]
  6. LIPITOR [Concomitant]
  7. PROSCAR [Concomitant]
  8. AVODART [Concomitant]
  9. NEURONTIN [Concomitant]
  10. DARVOCET (ACETAMINOPHEN, PROPOXYPHENE NAPSYLATE) [Concomitant]
  11. PRILOSEC [Concomitant]
  12. PROVIGIL [Concomitant]
  13. CALCIUM 600 +D (CALCIUM NOS, CHOLECALCIFEROL) [Concomitant]
  14. PROCRIT [Concomitant]
  15. CONCOMITANT DRUGS (GENERIC COMPONENT(S) NOT KNOWN) [Concomitant]

REACTIONS (6)
  - EATING DISORDER [None]
  - GINGIVAL BLEEDING [None]
  - GINGIVAL INFECTION [None]
  - LOOSE TOOTH [None]
  - OSTEONECROSIS [None]
  - PAIN IN JAW [None]
